FAERS Safety Report 19371435 (Version 1)
Quarter: 2021Q2

REPORT INFORMATION
  Report Type: Spontaneous
  Country: US (occurrence: US)
  Receive Date: 20210604
  Receipt Date: 20210604
  Transmission Date: 20210717
  Serious: No
  Sender: FDA-Public Use
  Company Number: US-SA-2021SA184358

PATIENT
  Sex: Male

DRUGS (1)
  1. AUBAGIO [Suspect]
     Active Substance: TERIFLUNOMIDE
     Indication: MULTIPLE SCLEROSIS
     Route: 048
     Dates: start: 20190328

REACTIONS (6)
  - Cognitive disorder [Unknown]
  - Back pain [Unknown]
  - Stress [Unknown]
  - Pain in extremity [Unknown]
  - Fatigue [Unknown]
  - Hyperactive pharyngeal reflex [Unknown]
